FAERS Safety Report 11458062 (Version 1)
Quarter: 2015Q3

REPORT INFORMATION
  Report Type: Spontaneous
  Country: US (occurrence: None)
  Receive Date: 20150903
  Receipt Date: 20150903
  Transmission Date: 20151125
  Serious: No
  Sender: FDA-Public Use
  Company Number: None

PATIENT
  Age: 64 Year
  Sex: Male
  Weight: 107.5 kg

DRUGS (4)
  1. PRILOSEC [Concomitant]
     Active Substance: OMEPRAZOLE MAGNESIUM
  2. MELOXICAM 7.5MG WALGREEN^S [Suspect]
     Active Substance: MELOXICAM
     Indication: MYALGIA
     Route: 048
     Dates: start: 20150828, end: 20150901
  3. VOLTAREN [Concomitant]
     Active Substance: DICLOFENAC SODIUM
  4. GLUCOSAMINE [Concomitant]
     Active Substance: GLUCOSAMINE

REACTIONS (4)
  - Erythema [None]
  - Burning sensation [None]
  - Headache [None]
  - Urticaria [None]

NARRATIVE: CASE EVENT DATE: 20150901
